FAERS Safety Report 6153800-4 (Version None)
Quarter: 2009Q2

REPORT INFORMATION
  Report Type: 
  Country: None (occurrence: None)
  Receive Date: 20090414
  Receipt Date: 20070410
  Transmission Date: 20091009
  Serious: Yes (Hospitalization, Other)
  Sender: FDA-Public Use
  Company Number: US-ASTRAZENECA-2006UW14784

PATIENT
  Age: 581 Month
  Sex: Male
  Weight: 165.1 kg

DRUGS (19)
  1. SEROQUEL [Suspect]
     Indication: INSOMNIA
     Route: 048
     Dates: end: 20040701
  2. SEROQUEL [Suspect]
     Dosage: 100-600MG
  3. ALTACE [Concomitant]
  4. ASPIRIN [Concomitant]
  5. DEPAKOTE [Concomitant]
  6. HUMULIN N [Concomitant]
  7. LEXAPRO [Concomitant]
  8. COUMADIN [Concomitant]
  9. SYNTHROID [Concomitant]
  10. ZESTRIL [Concomitant]
  11. BETAPACE [Concomitant]
  12. MYLANTA [Concomitant]
  13. METOPROLOL TARTRATE [Concomitant]
  14. TYLENOL [Concomitant]
  15. PROZAC [Concomitant]
  16. NEURONTIN [Concomitant]
  17. ELAVIL [Concomitant]
  18. TRAZODONE [Concomitant]
  19. VIAGRA [Concomitant]

REACTIONS (19)
  - AFFECTIVE DISORDER [None]
  - ANXIETY [None]
  - ATRIAL FIBRILLATION [None]
  - CHEST PAIN [None]
  - DEPRESSION [None]
  - DYSTHYMIC DISORDER [None]
  - ERECTILE DYSFUNCTION [None]
  - HYPERLIPIDAEMIA [None]
  - HYPERTENSION [None]
  - HYPOTHYROIDISM [None]
  - INSOMNIA [None]
  - PAIN IN EXTREMITY [None]
  - PERSONALITY DISORDER [None]
  - RENAL FAILURE [None]
  - SLEEP APNOEA SYNDROME [None]
  - SUICIDAL IDEATION [None]
  - TYPE 2 DIABETES MELLITUS [None]
  - VENTRICULAR HYPERTROPHY [None]
  - WEIGHT INCREASED [None]
